FAERS Safety Report 17594318 (Version 1)
Quarter: 2020Q1

REPORT INFORMATION
  Report Type: Spontaneous
  Country: ES (occurrence: ES)
  Receive Date: 20200327
  Receipt Date: 20200327
  Transmission Date: 20200409
  Serious: Yes (Other)
  Sender: FDA-Public Use
  Company Number: ES-AKRON, INC.-2082073

PATIENT
  Age: 64 Year
  Sex: Female

DRUGS (1)
  1. CLINDAMYCIN PHOSPHATE SOLUTION [Suspect]
     Active Substance: CLINDAMYCIN PHOSPHATE
     Indication: TOOTH INFECTION

REACTIONS (2)
  - Fixed eruption [Unknown]
  - Rash erythematous [Unknown]
